FAERS Safety Report 5134350-0 (Version None)
Quarter: 2006Q4

REPORT INFORMATION
  Report Type: 
  Country: None (occurrence: None)
  Receive Date: 20061025
  Receipt Date: 20061016
  Transmission Date: 20070319
  Serious: Yes (Hospitalization)
  Sender: FDA-Public Use
  Company Number: LT-JNJFOC-20061002852

PATIENT
  Age: 35 Year
  Sex: Male
  Weight: 56 kg

DRUGS (6)
  1. REMICADE [Suspect]
     Indication: ANKYLOSING SPONDYLITIS
     Dosage: 2 INFUSIONS
     Route: 042
  2. METHOTREXATE SODIUM [Concomitant]
     Indication: ANKYLOSING SPONDYLITIS
     Route: 048
  3. METHYLPREDNISOLONUM [Concomitant]
     Indication: ANKYLOSING SPONDYLITIS
     Route: 048
  4. FOLIC ACID [Concomitant]
     Indication: ANKYLOSING SPONDYLITIS
     Route: 048
  5. CELECOXIBUM [Concomitant]
     Indication: ANKYLOSING SPONDYLITIS
     Route: 048
  6. RANTIDINI [Concomitant]
     Indication: PROPHYLAXIS
     Route: 048

REACTIONS (2)
  - DISSEMINATED TUBERCULOSIS [None]
  - PULMONARY TUBERCULOSIS [None]
